FAERS Safety Report 9482403 (Version 1)
Quarter: 2013Q3

REPORT INFORMATION
  Report Type: Spontaneous
  Country: GB (occurrence: GB)
  Receive Date: 20130828
  Receipt Date: 20130828
  Transmission Date: 20140515
  Serious: Yes (Other)
  Sender: FDA-Public Use
  Company Number: GB-PFIZER INC-2013242140

PATIENT
  Sex: 0

DRUGS (1)
  1. AXITINIB [Suspect]

REACTIONS (1)
  - Renal failure [Unknown]
